FAERS Safety Report 13346787 (Version 1)
Quarter: 2017Q1

REPORT INFORMATION
  Report Type: Spontaneous
  Country: US (occurrence: US)
  Receive Date: 20170317
  Receipt Date: 20170317
  Transmission Date: 20170428
  Serious: No
  Sender: FDA-Public Use
  Company Number: US-PERRIGO-16US013920

PATIENT
  Sex: Female
  Weight: 61.22 kg

DRUGS (2)
  1. NICOTINE POLACRILEX [Suspect]
     Active Substance: NICOTINE
     Dosage: 1/2 LOZENGE EVERY HOUR
     Route: 002
     Dates: start: 2015
  2. NICOTINE POLACRILEX [Suspect]
     Active Substance: NICOTINE
     Indication: SMOKING CESSATION THERAPY
     Dosage: 2 MG PRN
     Route: 002
     Dates: start: 2012, end: 2015

REACTIONS (3)
  - Incorrect drug administration duration [Unknown]
  - Wrong technique in product usage process [Unknown]
  - Nicotine dependence [Unknown]

NARRATIVE: CASE EVENT DATE: 2012
